FAERS Safety Report 23441993 (Version 3)
Quarter: 2024Q1

REPORT INFORMATION
  Report Type: Spontaneous
  Country: US (occurrence: US)
  Receive Date: 20240125
  Receipt Date: 20240312
  Transmission Date: 20240410
  Serious: No
  Sender: FDA-Public Use
  Company Number: US-PFIZER INC-202400003369

PATIENT
  Age: 40 Year
  Sex: Female
  Weight: 77.11 kg

DRUGS (2)
  1. ESTRING [Suspect]
     Active Substance: ESTRADIOL
     Indication: Ovarian failure
     Dosage: 7.5 MICROGRAMS PER DAY
     Route: 067
     Dates: start: 20231222, end: 20240104
  2. MIRENA [Concomitant]
     Active Substance: LEVONORGESTREL
     Dosage: IUD

REACTIONS (14)
  - Off label use [Unknown]
  - Drug ineffective for unapproved indication [Unknown]
  - Device defective [Unknown]
  - Night sweats [Recovered/Resolved]
  - Hot flush [Recovered/Resolved]
  - Flushing [Recovered/Resolved]
  - Vaginal haemorrhage [Recovered/Resolved]
  - Muscle disorder [Unknown]
  - Urine flow decreased [Unknown]
  - Bone density decreased [Unknown]
  - Cardiovascular disorder [Unknown]
  - Quality of life decreased [Unknown]
  - Poor quality sleep [Unknown]
  - Headache [Unknown]

NARRATIVE: CASE EVENT DATE: 20231226
